FAERS Safety Report 5872986-X (Version None)
Quarter: 2008Q3

REPORT INFORMATION
  Report Type: 
  Country: None (occurrence: None)
  Receive Date: 20080905
  Receipt Date: 20080826
  Transmission Date: 20090109
  Serious: Yes (Hospitalization)
  Sender: FDA-Public Use
  Company Number: US-PFIZER INC-2008072171

PATIENT
  Sex: Female

DRUGS (5)
  1. CHANTIX [Suspect]
     Indication: SMOKING CESSATION THERAPY
     Dates: start: 20080301, end: 20080301
  2. TRILEPTAL [Concomitant]
  3. SEROQUEL [Concomitant]
  4. ATIVAN [Concomitant]
  5. CRESTOR [Concomitant]

REACTIONS (4)
  - ANXIETY [None]
  - MOOD ALTERED [None]
  - MOOD SWINGS [None]
  - PSYCHOMOTOR HYPERACTIVITY [None]
